FAERS Safety Report 4819470-X (Version None)
Quarter: 2005Q4

REPORT INFORMATION
  Report Type: 
  Country: None (occurrence: None)
  Receive Date: 20051031
  Receipt Date: 20050711
  Transmission Date: 20060501
  Serious: No
  Sender: FDA-Public Use
  Company Number: 2005PV000367

PATIENT
  Age: 64 Year
  Sex: Male
  Weight: 127.0072 kg

DRUGS (7)
  1. SYMLIN [Suspect]
     Indication: DIABETES MELLITUS INSULIN-DEPENDENT
     Dosage: 60 MCG; TID; SC; SEE IMAGE
     Route: 058
     Dates: start: 20050708, end: 20050710
  2. SYMLIN [Suspect]
     Indication: DIABETES MELLITUS INSULIN-DEPENDENT
     Dosage: 60 MCG; TID; SC; SEE IMAGE
     Route: 058
     Dates: start: 20050711
  3. FUROSEMIDE [Concomitant]
  4. DIGOXIN [Concomitant]
  5. COREG [Concomitant]
  6. AVANDIA [Concomitant]
  7. NOVOLOG [Concomitant]

REACTIONS (1)
  - BLOOD GLUCOSE INCREASED [None]
